FAERS Safety Report 22103082 (Version 1)
Quarter: 2023Q1

REPORT INFORMATION
  Report Type: Spontaneous
  Country: BR (occurrence: BR)
  Receive Date: 20230316
  Receipt Date: 20230316
  Transmission Date: 20230417
  Serious: Yes (Disabling)
  Sender: FDA-Public Use
  Company Number: BR-CELLTRION INC.-2023BR005392

PATIENT

DRUGS (7)
  1. INFLIXIMAB [Suspect]
     Active Substance: INFLIXIMAB
     Indication: Rheumatoid arthritis
     Dosage: EVERY 2 MONTHS
     Route: 042
     Dates: start: 20220819, end: 20230227
  2. VITAMIN D NOS [Concomitant]
     Active Substance: VITAMIN D NOS
     Dosage: 1 PILL PER DAY
     Route: 048
     Dates: start: 2022
  3. VITAMIN B12 [Concomitant]
     Active Substance: CYANOCOBALAMIN
     Dosage: 1 AMPOULE PER WEEK, INJETABLE
     Dates: start: 2022
  4. CONDRESS [Concomitant]
     Dosage: 1 PILL PER DAY
     Route: 048
     Dates: start: 2022
  5. AZULFIDINE [Concomitant]
     Active Substance: SULFASALAZINE
     Indication: Pain
     Dosage: 500 MG, 2 PILLS PER DAY
     Route: 048
     Dates: start: 202302
  6. CITALOPRAM [Concomitant]
     Active Substance: CITALOPRAM HYDROBROMIDE
     Indication: Depression
     Dosage: 10 MG, 1 PILL PER DAY
     Route: 048
     Dates: start: 202302
  7. VALSARTAN [Concomitant]
     Active Substance: VALSARTAN
     Indication: Hypertension
     Dosage: 160 MG, 1 PILL PER DAY
     Route: 048
     Dates: start: 2018

REACTIONS (14)
  - Bedridden [Not Recovered/Not Resolved]
  - Ill-defined disorder [Not Recovered/Not Resolved]
  - Disease progression [Not Recovered/Not Resolved]
  - Oral pain [Not Recovered/Not Resolved]
  - Dry mouth [Not Recovered/Not Resolved]
  - Glossodynia [Not Recovered/Not Resolved]
  - Peripheral swelling [Not Recovered/Not Resolved]
  - Malaise [Not Recovered/Not Resolved]
  - Weight decreased [Not Recovered/Not Resolved]
  - Pruritus [Not Recovered/Not Resolved]
  - Constipation [Not Recovered/Not Resolved]
  - Pain [Not Recovered/Not Resolved]
  - Dizziness [Not Recovered/Not Resolved]
  - Drug ineffective [Not Recovered/Not Resolved]
